FAERS Safety Report 21048252 (Version 1)
Quarter: 2022Q3

REPORT INFORMATION
  Report Type: Other
  Country: CN (occurrence: CN)
  Receive Date: 20220706
  Receipt Date: 20220706
  Transmission Date: 20221027
  Serious: Yes (Other)
  Sender: FDA-Public Use
  Company Number: CN-002147023-NVSC2022CN150598

PATIENT

DRUGS (1)
  1. RANIBIZUMAB [Suspect]
     Active Substance: RANIBIZUMAB
     Indication: Macular oedema
     Dosage: 0.05 ML, SLOWLY INJECTED INTO THE FUNDUS AT THE ANGLE OF VERTICAL EYEBALL USING A SYRINGE
     Route: 050

REACTIONS (1)
  - Vitreous haemorrhage [Unknown]
